FAERS Safety Report 10208689 (Version 1)
Quarter: 2014Q2

REPORT INFORMATION
  Report Type: Spontaneous
  Country: US (occurrence: US)
  Receive Date: 20140530
  Receipt Date: 20140530
  Transmission Date: 20141212
  Serious: No
  Sender: FDA-Public Use
  Company Number: US-TEVA-482348USA

PATIENT
  Age: 61 Year
  Sex: Male
  Weight: 68.1 kg

DRUGS (9)
  1. AZILECT [Suspect]
     Indication: PARKINSON^S DISEASE
     Dates: start: 20140326
  2. ASPIRIN [Concomitant]
     Indication: ISCHAEMIC HEART DISEASE PROPHYLAXIS
     Dosage: 81 MILLIGRAM DAILY;
     Route: 048
  3. SERTRALINE [Concomitant]
     Indication: ANXIETY
     Dosage: 100 MILLIGRAM DAILY;
  4. SERTRALINE [Concomitant]
     Indication: DEPRESSION
  5. PROPRANOLOL [Concomitant]
     Indication: ANXIETY
  6. CARBIDOPA W/LEVODOPA [Concomitant]
     Indication: PARKINSON^S DISEASE
     Dosage: 25-100 MG, 3 TABLETS 5 TIMES A DAY
     Route: 048
  7. GABAPENTIN [Concomitant]
     Indication: ANXIETY
     Route: 048
  8. SINGULAIR [Concomitant]
  9. AVONEX [Concomitant]

REACTIONS (4)
  - Nocturia [Unknown]
  - Anxiety [Not Recovered/Not Resolved]
  - Gait disturbance [Unknown]
  - Depressed mood [Unknown]
